FAERS Safety Report 17415049 (Version 2)
Quarter: 2020Q1

REPORT INFORMATION
  Report Type: Report from Study
  Country: FR (occurrence: FR)
  Receive Date: 20200213
  Receipt Date: 20200224
  Transmission Date: 20200409
  Serious: Yes (Hospitalization)
  Sender: FDA-Public Use
  Company Number: FR-ALNYLAM PHARMACEUTICALS, INC.-ALN-2019-000819

PATIENT
  Age: 53 Year
  Sex: Male

DRUGS (2)
  1. VITAMIN A [Concomitant]
     Active Substance: VITAMIN A
     Indication: PRODUCT USED FOR UNKNOWN INDICATION
     Route: 048
  2. ONPATTRO [Suspect]
     Active Substance: PATISIRAN SODIUM
     Indication: HEREDITARY NEUROPATHIC AMYLOIDOSIS
     Route: 042

REACTIONS (22)
  - Heart rate increased [Unknown]
  - Infusion related reaction [Unknown]
  - Fatigue [Unknown]
  - Gait disturbance [Unknown]
  - Energy increased [Unknown]
  - Arrhythmia [Unknown]
  - Weight increased [Unknown]
  - Balance disorder [Unknown]
  - Memory impairment [Recovered/Resolved]
  - Visual impairment [Unknown]
  - Nausea [Unknown]
  - Urinary tract infection [Unknown]
  - Pain in extremity [Unknown]
  - Insomnia [Unknown]
  - Vitamin D deficiency [Unknown]
  - Diarrhoea [Unknown]
  - Muscle spasms [Unknown]
  - Dyspepsia [Unknown]
  - Blood pressure decreased [Unknown]
  - Fall [Unknown]
  - Dysstasia [Unknown]
  - Malaise [Unknown]

NARRATIVE: CASE EVENT DATE: 2019
